FAERS Safety Report 4465032-6 (Version None)
Quarter: 2004Q4

REPORT INFORMATION
  Report Type: 
  Country: None (occurrence: None)
  Receive Date: 20041004
  Receipt Date: 20040820
  Transmission Date: 20050328
  Serious: Yes (Hospitalization)
  Sender: FDA-Public Use
  Company Number: US-ROCHE-378427

PATIENT
  Age: 15 Year
  Sex: Female

DRUGS (7)
  1. ACCUTANE [Suspect]
     Indication: ACNE
     Route: 048
     Dates: start: 19960615, end: 19961215
  2. ASACOL [Concomitant]
     Dates: start: 19860615
  3. L-HYOSCYAMINE [Concomitant]
     Dosage: DRUG REPORTED AS: L-HYSCYAMINE.
     Dates: start: 19860615
  4. AMOXICILLIN [Concomitant]
     Dates: start: 19860615
  5. IMURAN [Concomitant]
     Dates: start: 19860615
  6. PREDNISONE [Concomitant]
     Dates: start: 19860615
  7. MIDRIN [Concomitant]
     Dates: start: 19860615

REACTIONS (10)
  - ABDOMINAL PAIN UPPER [None]
  - APPENDICITIS [None]
  - CROHN'S DISEASE [None]
  - DRY SKIN [None]
  - ECZEMA [None]
  - HEADACHE [None]
  - HYPOGLYCAEMIA [None]
  - IRON DEFICIENCY ANAEMIA [None]
  - POLYDIPSIA [None]
  - POLYURIA [None]
